FAERS Safety Report 14922463 (Version 1)
Quarter: 2018Q2

REPORT INFORMATION
  Report Type: Spontaneous
  Country: US (occurrence: US)
  Receive Date: 20180502
  Receipt Date: 20180502
  Transmission Date: 20180711
  Serious: Yes (Death, Life-Threatening, Hospitalization)
  Sender: FDA-Public Use
  Company Number: None

PATIENT
  Age: 67 Year
  Sex: Male
  Weight: 55.3 kg

DRUGS (10)
  1. AMLODIPINE [Concomitant]
     Active Substance: AMLODIPINE BESYLATE
  2. GABAPENTIN. [Concomitant]
     Active Substance: GABAPENTIN
  3. PEMBROLIZUMAB 100MG/4ML VIAL [Suspect]
     Active Substance: PEMBROLIZUMAB
     Indication: OESOPHAGEAL CARCINOMA
     Route: 042
     Dates: start: 20180105, end: 20180105
  4. MORPHINE [Concomitant]
     Active Substance: MORPHINE
  5. CLONIDINE HCI [Concomitant]
  6. ATORVASTATIN [Concomitant]
     Active Substance: ATORVASTATIN
  7. METOPROLOL. [Concomitant]
     Active Substance: METOPROLOL
  8. EPACADOSTAT 100MG TABLET #35 [Suspect]
     Active Substance: EPACADOSTAT
     Indication: OESOPHAGEAL CARCINOMA
     Route: 048
     Dates: start: 20180105, end: 20180113
  9. GLIPIZIDE. [Concomitant]
     Active Substance: GLIPIZIDE
  10. HYDROCODONE-ACETAMINOPHEN [Concomitant]
     Active Substance: ACETAMINOPHEN\HYDROCODONE

REACTIONS (6)
  - Abdominal pain [None]
  - Sepsis [None]
  - Pleural effusion [None]
  - Syncope [None]
  - Intestinal perforation [None]
  - Concomitant disease aggravated [None]

NARRATIVE: CASE EVENT DATE: 20180113
